FAERS Safety Report 10448344 (Version 4)
Quarter: 2014Q4

REPORT INFORMATION
  Report Type: Report from Study
  Country: US (occurrence: US)
  Receive Date: 20140911
  Receipt Date: 20141117
  Transmission Date: 20150528
  Serious: Yes (Death, Hospitalization)
  Sender: FDA-Public Use
  Company Number: US-ACTELION-A-US2012-74384

PATIENT
  Age: 76 Year
  Sex: Female

DRUGS (2)
  1. TRACLEER [Suspect]
     Active Substance: BOSENTAN\BOSENTAN MONOHYDRATE
     Indication: PULMONARY ARTERIAL HYPERTENSION
     Dosage: UNK
     Route: 048
     Dates: end: 20141013
  2. SILDENAFIL. [Concomitant]
     Active Substance: SILDENAFIL

REACTIONS (11)
  - Memory impairment [Unknown]
  - Lung cancer metastatic [Fatal]
  - Vomiting [Unknown]
  - Lung neoplasm malignant [Recovering/Resolving]
  - Anaemia [Recovering/Resolving]
  - Gastrointestinal disorder [Unknown]
  - Haemorrhage [Recovering/Resolving]
  - Fatigue [Recovering/Resolving]
  - Chemotherapy [Recovering/Resolving]
  - Syncope [Unknown]
  - Dehydration [Unknown]
